FAERS Safety Report 20540930 (Version 1)
Quarter: 2022Q1

REPORT INFORMATION
  Report Type: Spontaneous
  Country: FR (occurrence: FR)
  Receive Date: 20220302
  Receipt Date: 20220302
  Transmission Date: 20220423
  Serious: Yes (Life-Threatening, Hospitalization)
  Sender: FDA-Public Use
  Company Number: FR-TEVA-2021-FR-1963728

PATIENT
  Age: 42 Year
  Sex: Male

DRUGS (14)
  1. HALOPERIDOL DECANOATE [Suspect]
     Active Substance: HALOPERIDOL DECANOATE
     Indication: Agitation
     Dosage: FOUR DOSES
     Route: 030
     Dates: start: 2019
  2. PROMETHAZINE [Suspect]
     Active Substance: PROMETHAZINE HYDROCHLORIDE
     Indication: Psychotic symptom
     Dosage: ONE DOSE; ON HOSPITAL DAY 10 AT 7:00 PM
     Route: 030
     Dates: start: 2019
  3. PROMETHAZINE [Suspect]
     Active Substance: PROMETHAZINE HYDROCHLORIDE
     Indication: Agitation
     Dosage: THREE DOSES; ON THE FIRST NIGHT OF HIS ADMISSION
     Route: 030
     Dates: start: 2019
  4. PROMETHAZINE [Suspect]
     Active Substance: PROMETHAZINE HYDROCHLORIDE
     Dosage: SECOND DAY OF HIS ADMISSION
     Route: 030
     Dates: start: 2019
  5. PROMETHAZINE [Suspect]
     Active Substance: PROMETHAZINE HYDROCHLORIDE
     Route: 030
     Dates: start: 2019
  6. DIAZEPAM [Suspect]
     Active Substance: DIAZEPAM
     Indication: Agitation
     Route: 065
     Dates: start: 2019
  7. DIAZEPAM [Suspect]
     Active Substance: DIAZEPAM
     Indication: Psychotic symptom
  8. CHLORPROMAZINE [Suspect]
     Active Substance: CHLORPROMAZINE
     Indication: Agitation
     Dosage: ON HOSPITAL DAY 10 AT 4:00 PM
     Route: 048
     Dates: start: 2019
  9. CHLORPROMAZINE [Suspect]
     Active Substance: CHLORPROMAZINE
     Indication: Psychotic symptom
     Dosage: ONE DOSE; ON HOSPITAL DAY 10 AT 7:00 PM
     Route: 030
     Dates: start: 2019
  10. CHLORPROMAZINE [Suspect]
     Active Substance: CHLORPROMAZINE
     Dosage: THREE DOSES; ON THE FIRST NIGHT OF HIS ADMISSION
     Route: 030
     Dates: start: 2019
  11. CHLORPROMAZINE [Suspect]
     Active Substance: CHLORPROMAZINE
     Route: 030
     Dates: start: 2019
  12. OLANZAPINE [Suspect]
     Active Substance: OLANZAPINE
     Indication: Agitation
     Route: 065
     Dates: start: 2019, end: 2019
  13. OLANZAPINE [Suspect]
     Active Substance: OLANZAPINE
     Indication: Psychotic symptom
     Dosage: SECOND DAY OF HIS ADMISSION
     Route: 065
     Dates: start: 2019, end: 2019
  14. BISOPROLOL [Concomitant]
     Active Substance: BISOPROLOL
     Indication: Sinus tachycardia
     Route: 065
     Dates: start: 2019

REACTIONS (2)
  - Neuroleptic malignant syndrome [Recovering/Resolving]
  - Haemodynamic instability [Recovering/Resolving]

NARRATIVE: CASE EVENT DATE: 20190101
